FAERS Safety Report 18302678 (Version 2)
Quarter: 2022Q3

REPORT INFORMATION
  Report Type: Report from Study
  Country: US (occurrence: US)
  Receive Date: 20200923
  Receipt Date: 20220728
  Transmission Date: 20221027
  Serious: Yes (Other)
  Sender: FDA-Public Use
  Company Number: US-PFIZER INC-2020361549

PATIENT
  Age: 66 Year
  Sex: Female

DRUGS (3)
  1. PACLITAXEL [Suspect]
     Active Substance: PACLITAXEL
     Indication: Ovarian cancer stage III
     Dosage: 80 MG/M2, DAYS 1, 8 AND 15 EVERY 28 DAYS
  2. SAPANISERTIB [Suspect]
     Active Substance: SAPANISERTIB
     Indication: Ovarian cancer stage III
     Dosage: 4 MG, DAYS 2-4, 9-11, 16-18, AND 23-25
  3. SERABELISIB [Suspect]
     Active Substance: SERABELISIB
     Indication: Ovarian cancer stage III
     Dosage: 200 MG, DAYS 2-4, 9-11, 16-18, AND 23-25

REACTIONS (2)
  - Renal impairment [Unknown]
  - Hyperglycaemia [Unknown]
